FAERS Safety Report 19217641 (Version 3)
Quarter: 2021Q2

REPORT INFORMATION
  Report Type: Report from Study
  Country: US (occurrence: US)
  Receive Date: 20210505
  Receipt Date: 20210625
  Transmission Date: 20210717
  Serious: Yes (Hospitalization)
  Sender: FDA-Public Use
  Company Number: US-BIOGEN-2021BI01000359

PATIENT
  Sex: Male

DRUGS (2)
  1. TYSABRI [Suspect]
     Active Substance: NATALIZUMAB
     Indication: MULTIPLE SCLEROSIS
     Route: 065
     Dates: start: 20110801, end: 20210220
  2. TYSABRI [Suspect]
     Active Substance: NATALIZUMAB
     Route: 065
     Dates: start: 20110801

REACTIONS (9)
  - Cellulitis [Unknown]
  - Benign prostatic hyperplasia [Unknown]
  - Sepsis [Unknown]
  - Type 2 diabetes mellitus [Unknown]
  - Leukocytosis [Unknown]
  - Paraplegia [Unknown]
  - Decubitus ulcer [Unknown]
  - Chronic kidney disease [Unknown]
  - Multiple sclerosis [Unknown]
